FAERS Safety Report 19086475 (Version 3)
Quarter: 2021Q2

REPORT INFORMATION
  Report Type: Spontaneous
  Country: CA (occurrence: CA)
  Receive Date: 20210402
  Receipt Date: 20210527
  Transmission Date: 20210717
  Serious: Yes (Other)
  Sender: FDA-Public Use
  Company Number: CA-ORION CORPORATION ORION PHARMA-21_00013863

PATIENT
  Age: 59 Year
  Sex: Female

DRUGS (12)
  1. NAPROXEN. [Concomitant]
     Active Substance: NAPROXEN
     Indication: ANALGESIC THERAPY
     Route: 065
  2. VOLTAREN [Concomitant]
     Active Substance: DICLOFENAC SODIUM
     Indication: ANALGESIC THERAPY
     Route: 065
  3. VOLTAREN [Concomitant]
     Active Substance: DICLOFENAC SODIUM
     Indication: HEADACHE
  4. TYLENOL [Concomitant]
     Active Substance: ACETAMINOPHEN
     Indication: ANALGESIC THERAPY
     Route: 065
  5. CBD OIL [Concomitant]
     Active Substance: CANNABIDIOL\HERBALS
     Indication: HEADACHE
  6. DILTIAZEM. [Concomitant]
     Active Substance: DILTIAZEM
     Route: 065
  7. NAPROXEN. [Concomitant]
     Active Substance: NAPROXEN
     Indication: HEADACHE
  8. LEFLUNOMIDE. [Concomitant]
     Active Substance: LEFLUNOMIDE
     Route: 065
  9. XELJANZ [Concomitant]
     Active Substance: TOFACITINIB CITRATE
     Indication: RHEUMATOID ARTHRITIS
     Route: 048
     Dates: start: 20210329
  10. CBD OIL [Concomitant]
     Active Substance: CANNABIDIOL\HERBALS
     Indication: ANALGESIC THERAPY
     Route: 065
  11. TYLENOL [Concomitant]
     Active Substance: ACETAMINOPHEN
     Indication: HEADACHE
  12. METHOTREXATE (TRADE NAME UNKNOWN) [Suspect]
     Active Substance: METHOTREXATE
     Indication: RHEUMATOID ARTHRITIS
     Route: 065

REACTIONS (13)
  - Rheumatoid lung [Unknown]
  - Pain [Unknown]
  - Pain in extremity [Unknown]
  - Gastric ulcer [Unknown]
  - Back pain [Unknown]
  - Mobility decreased [Unknown]
  - Grip strength decreased [Unknown]
  - Arthralgia [Unknown]
  - Nausea [Not Recovered/Not Resolved]
  - Hip fracture [Unknown]
  - Fall [Unknown]
  - Musculoskeletal disorder [Unknown]
  - Headache [Not Recovered/Not Resolved]
